FAERS Safety Report 10999160 (Version 1)
Quarter: 2015Q2

REPORT INFORMATION
  Report Type: Spontaneous
  Country: US (occurrence: US)
  Receive Date: 20150408
  Receipt Date: 20150408
  Transmission Date: 20150821
  Serious: No
  Sender: FDA-Public Use
  Company Number: US-SA-2014SA061481

PATIENT
  Age: 57 Year
  Sex: Female

DRUGS (5)
  1. NEPROXIN [Concomitant]
     Route: 065
  2. ZYRTEC [Concomitant]
     Active Substance: CETIRIZINE HYDROCHLORIDE
     Route: 065
  3. ALLEGRA [Suspect]
     Active Substance: FEXOFENADINE HYDROCHLORIDE
     Indication: HYPERSENSITIVITY
     Route: 048
  4. RESERVATROL [Concomitant]
     Route: 065
  5. CLARITIN [Concomitant]
     Active Substance: LORATADINE
     Route: 065

REACTIONS (4)
  - Blood pressure increased [Unknown]
  - Sinusitis [Unknown]
  - Heart rate increased [Unknown]
  - Hypoaesthesia [Unknown]
